FAERS Safety Report 19258679 (Version 2)
Quarter: 2021Q3

REPORT INFORMATION
  Report Type: Report from Study
  Country: PL (occurrence: PL)
  Receive Date: 20210514
  Receipt Date: 20210728
  Transmission Date: 20211014
  Serious: Yes (Hospitalization)
  Sender: FDA-Public Use
  Company Number: PL-ROCHE-2825562

PATIENT
  Age: 80 Year
  Sex: Male

DRUGS (57)
  1. ACP?196 [Suspect]
     Active Substance: ACALABRUTINIB
     Route: 065
     Dates: start: 20161004, end: 20161018
  2. ACP?196 [Suspect]
     Active Substance: ACALABRUTINIB
     Route: 065
     Dates: start: 20161019, end: 20161101
  3. ACP?196 [Suspect]
     Active Substance: ACALABRUTINIB
     Route: 065
     Dates: start: 20161102, end: 20161116
  4. ACP?196 [Suspect]
     Active Substance: ACALABRUTINIB
     Route: 065
     Dates: start: 20170523, end: 20170607
  5. ELIQUIS [Concomitant]
     Active Substance: APIXABAN
     Indication: ATRIAL FIBRILLATION
  6. CLEMASTINUM [Concomitant]
     Active Substance: CLEMASTINE FUMARATE
     Indication: PREMEDICATION
  7. FUROSEMIDUM [Concomitant]
     Active Substance: FUROSEMIDE
     Indication: PREMEDICATION
  8. HEPARIN [Concomitant]
     Active Substance: HEPARIN SODIUM
     Indication: PREMEDICATION
  9. ACP?196 [Suspect]
     Active Substance: ACALABRUTINIB
     Route: 065
     Dates: start: 20190404, end: 20190627
  10. ACP?196 [Suspect]
     Active Substance: ACALABRUTINIB
     Route: 065
     Dates: start: 20190920, end: 20191212
  11. ACP?196 [Suspect]
     Active Substance: ACALABRUTINIB
     Route: 065
     Dates: start: 20210205
  12. TRITACE [Concomitant]
     Active Substance: RAMIPRIL
     Indication: PREMEDICATION
  13. ASA [Concomitant]
     Active Substance: ASPIRIN
     Indication: PREMEDICATION
  14. TOBRADEX [Concomitant]
     Active Substance: DEXAMETHASONE\TOBRAMYCIN
     Indication: PREMEDICATION
  15. ACP?196 [Suspect]
     Active Substance: ACALABRUTINIB
     Route: 065
     Dates: start: 20200529, end: 20200820
  16. BISEPTOL [Concomitant]
     Active Substance: SULFAMETHOXAZOLE\TRIMETHOPRIM
     Indication: PREMEDICATION
  17. PRADAX [Concomitant]
     Active Substance: DABIGATRAN ETEXILATE MESYLATE
     Indication: ATRIAL FIBRILLATION
  18. LIDOCAINE. [Concomitant]
     Active Substance: LIDOCAINE
     Indication: PREMEDICATION
  19. PAMYL [Concomitant]
     Indication: PREMEDICATION
  20. PANTOPRAZOLE [Concomitant]
     Active Substance: PANTOPRAZOLE
     Indication: PREMEDICATION
  21. OBINUTUZUMAB. [Suspect]
     Active Substance: OBINUTUZUMAB
     Route: 042
     Dates: start: 20170309, end: 20170309
  22. ACP?196 [Suspect]
     Active Substance: ACALABRUTINIB
     Route: 065
     Dates: start: 20190110, end: 20190403
  23. NEVANAC [Concomitant]
     Active Substance: NEPAFENAC
     Indication: PREMEDICATION
  24. ACETAMINOPHEN. [Concomitant]
     Active Substance: ACETAMINOPHEN
     Indication: PREMEDICATION
  25. ATORVASTATIN [Concomitant]
     Active Substance: ATORVASTATIN
     Indication: PREMEDICATION
  26. CLEXANE [Concomitant]
     Active Substance: ENOXAPARIN SODIUM
     Indication: PREMEDICATION
  27. PLAVIX [Concomitant]
     Active Substance: CLOPIDOGREL BISULFATE
  28. ACP?196 [Suspect]
     Active Substance: ACALABRUTINIB
     Route: 065
     Dates: start: 20200306, end: 20200528
  29. ACP?196 [Suspect]
     Active Substance: ACALABRUTINIB
     Route: 065
     Dates: start: 20200821, end: 20201112
  30. DEXOFTYAL [Concomitant]
     Indication: PREMEDICATION
  31. EXACYL [Concomitant]
     Active Substance: TRANEXAMIC ACID
     Indication: PREMEDICATION
  32. CYCLONAMINE [Concomitant]
     Active Substance: ETHAMSYLATE
     Indication: PREMEDICATION
  33. BETO ZK [Concomitant]
     Active Substance: METOPROLOL SUCCINATE
     Indication: ATRIAL FIBRILLATION
  34. TULIP (POLAND) [Concomitant]
     Indication: PREMEDICATION
  35. IODIXANOL. [Concomitant]
     Active Substance: IODIXANOL
     Indication: PREMEDICATION
  36. METOPROLOL. [Concomitant]
     Active Substance: METOPROLOL
     Indication: PREMEDICATION
  37. DILURAN [Concomitant]
     Active Substance: ACETAZOLAMIDE
     Indication: PREMEDICATION
  38. OBINUTUZUMAB. [Suspect]
     Active Substance: OBINUTUZUMAB
     Indication: CHRONIC LYMPHOCYTIC LEUKAEMIA
     Route: 042
     Dates: start: 20161019, end: 20161019
  39. ACP?196 [Suspect]
     Active Substance: ACALABRUTINIB
     Route: 065
     Dates: start: 20190628, end: 20190919
  40. CLOPIDOGREL [Concomitant]
     Active Substance: CLOPIDOGREL BISULFATE
     Indication: ATRIAL FIBRILLATION
  41. CODEINE [Concomitant]
     Active Substance: CODEINE
     Indication: PREMEDICATION
  42. APO FINA [Concomitant]
     Active Substance: FINASTERIDE
     Indication: BENIGN PROSTATIC HYPERPLASIA
  43. AZOPT [Concomitant]
     Active Substance: BRINZOLAMIDE
     Indication: PREMEDICATION
  44. ACP?196 [Suspect]
     Active Substance: ACALABRUTINIB
     Route: 065
     Dates: start: 20161215, end: 20170111
  45. ACP?196 [Suspect]
     Active Substance: ACALABRUTINIB
     Route: 065
     Dates: start: 20170209, end: 20170308
  46. ACP?196 [Suspect]
     Active Substance: ACALABRUTINIB
     Route: 065
     Dates: start: 20201113, end: 20210204
  47. APO TAMIS [Concomitant]
     Indication: BENIGN PROSTATIC HYPERPLASIA
  48. GLYCERYL TRINITRATE [Concomitant]
     Active Substance: NITROGLYCERIN
     Indication: PREMEDICATION
  49. IPP [OMEPRAZOLE] [Concomitant]
     Active Substance: OMEPRAZOLE
     Indication: PREMEDICATION
  50. ACP?196 [Suspect]
     Active Substance: ACALABRUTINIB
     Indication: CHRONIC LYMPHOCYTIC LEUKAEMIA
     Route: 065
     Dates: start: 20160920, end: 20161003
  51. ACP?196 [Suspect]
     Active Substance: ACALABRUTINIB
     Route: 065
     Dates: start: 20161117, end: 20161214
  52. ACP?196 [Suspect]
     Active Substance: ACALABRUTINIB
     Route: 065
     Dates: start: 20170112, end: 20170208
  53. ACP?196 [Suspect]
     Active Substance: ACALABRUTINIB
     Route: 065
     Dates: start: 20170309, end: 20170522
  54. ACP?196 [Suspect]
     Active Substance: ACALABRUTINIB
     Route: 065
     Dates: start: 20191213, end: 20200305
  55. DEXAMETHASONE. [Concomitant]
     Active Substance: DEXAMETHASONE
     Indication: PREMEDICATION
  56. ACARD [Concomitant]
     Indication: MYOCARDIAL ISCHAEMIA
  57. LORISTA [Concomitant]
     Active Substance: LOSARTAN POTASSIUM
     Indication: HYPERTENSION

REACTIONS (1)
  - Pulmonary haemorrhage [Recovered/Resolved]

NARRATIVE: CASE EVENT DATE: 20210224
